FAERS Safety Report 23293042 (Version 2)
Quarter: 2023Q4

REPORT INFORMATION
  Report Type: Spontaneous
  Country: NL (occurrence: NL)
  Receive Date: 20231213
  Receipt Date: 20231219
  Transmission Date: 20240110
  Serious: Yes (Other)
  Sender: FDA-Public Use
  Company Number: NL-SANDOZ-SDZ2023NL009039

PATIENT
  Sex: Female

DRUGS (1)
  1. ACLASTA [Suspect]
     Active Substance: ZOLEDRONIC ACID
     Indication: Osteoporosis
     Dosage: UNK (1 PER 52 WEEKS)
     Route: 042
     Dates: start: 20230713

REACTIONS (2)
  - Loss of consciousness [Recovered/Resolved]
  - Cold sweat [Unknown]
